FAERS Safety Report 6745633-2 (Version None)
Quarter: 2010Q2

REPORT INFORMATION
  Report Type: 
  Country: None (occurrence: None)
  Receive Date: 20100526
  Receipt Date: 20100526
  Transmission Date: 20101027
  Serious: Yes (Other)
  Sender: FDA-Public Use
  Company Number: None

PATIENT
  Age: 33 Year
  Sex: Female
  Weight: 57.6068 kg

DRUGS (1)
  1. MIRENA [Suspect]

REACTIONS (3)
  - ABDOMINAL PAIN [None]
  - DEVICE DISLOCATION [None]
  - PROCEDURAL PAIN [None]
